FAERS Safety Report 8825269 (Version 1)
Quarter: 2012Q4

REPORT INFORMATION
  Report Type: 
  Country: US (occurrence: US)
  Receive Date: 20121004
  Receipt Date: 20121004
  Transmission Date: 20130627
  Serious: Yes (Other)
  Sender: FDA-Public Use
  Company Number: US-ROCHE-CID000000002133265

PATIENT
  Sex: Male

DRUGS (4)
  1. RITUXAN [Suspect]
     Indication: IDIOPATHIC THROMBOCYTOPENIC PURPURA
     Route: 065
  2. VINCRISTINE [Concomitant]
  3. CYTOXAN [Concomitant]
  4. CYCLOSPORINE [Concomitant]

REACTIONS (5)
  - Cholelithiasis [Unknown]
  - Biliary sepsis [Unknown]
  - Chills [Unknown]
  - Decreased appetite [Unknown]
  - Pancreatitis [Unknown]
